FAERS Safety Report 4393034-7 (Version None)
Quarter: 2004Q3

REPORT INFORMATION
  Report Type: 
  Country: None (occurrence: None)
  Receive Date: 20040708
  Receipt Date: 20031024
  Transmission Date: 20050211
  Serious: Yes (Other)
  Sender: FDA-Public Use
  Company Number: PHBS2003NO11893

PATIENT
  Age: 55 Year
  Sex: Female

DRUGS (1)
  1. PARLODEL [Suspect]
     Dosage: 2.5 UG/DAY
     Route: 048
     Dates: end: 20030801

REACTIONS (3)
  - ARTERIAL STENOSIS [None]
  - CORONARY ARTERY STENOSIS [None]
  - MYOCARDIAL INFARCTION [None]
